FAERS Safety Report 23348507 (Version 1)
Quarter: 2023Q4

REPORT INFORMATION
  Report Type: Spontaneous
  Country: US (occurrence: US)
  Receive Date: 20231228
  Receipt Date: 20231228
  Transmission Date: 20240110
  Serious: No
  Sender: FDA-Public Use
  Company Number: US-GSKCCFUS-Case-01890111_AE-105485

PATIENT
  Sex: Female

DRUGS (1)
  1. IMITREX [Suspect]
     Active Substance: SUMATRIPTAN SUCCINATE
     Indication: Headache
     Dosage: 20 MG

REACTIONS (1)
  - Drug ineffective [Unknown]
